FAERS Safety Report 8020916-7 (Version None)
Quarter: 2011Q4

REPORT INFORMATION
  Report Type: 
  Country: None (occurrence: None)
  Receive Date: 20111229
  Receipt Date: 20111229
  Transmission Date: 20120403
  Serious: Yes (Hospitalization)
  Sender: FDA-Public Use
  Company Number: None

PATIENT
  Age: 85 Year
  Sex: Male
  Weight: 112.9 kg

DRUGS (3)
  1. ASPIRIN AND DIPYRIDAMOLE [Suspect]
     Indication: PROPHYLAXIS
     Dosage: 1 TAB BID PO
     Route: 048
     Dates: start: 20101211, end: 20110722
  2. ASPIRIN AND DIPYRIDAMOLE [Suspect]
     Indication: CEREBROVASCULAR ACCIDENT
     Dosage: 1 TAB BID PO
     Route: 048
     Dates: start: 20101211, end: 20110722
  3. IBUPROFEN [Suspect]
     Indication: PAIN
     Dosage: 800 MG PRN PO
     Route: 048

REACTIONS (1)
  - GASTRIC HAEMORRHAGE [None]
